FAERS Safety Report 4535037-5 (Version None)
Quarter: 2004Q4

REPORT INFORMATION
  Report Type: 
  Country: None (occurrence: None)
  Receive Date: 20041214
  Receipt Date: 20041104
  Transmission Date: 20050328
  Serious: Yes (Other)
  Sender: FDA-Public Use
  Company Number: 2004090164

PATIENT
  Sex: Female

DRUGS (4)
  1. BEXTRA [Suspect]
     Indication: ARTHRALGIA
     Dosage: 20 MG (20 MG, DAILY   INTERVAL   EVERY DAY) ORAL
     Route: 048
     Dates: start: 20040801, end: 20040101
  2. BEXTRA [Suspect]
     Indication: OSTEOARTHRITIS
     Dosage: 20 MG (20 MG, DAILY   INTERVAL   EVERY DAY) ORAL
     Route: 048
     Dates: start: 20040801, end: 20040101
  3. CELEBREX [Suspect]
     Indication: OSTEOARTHRITIS
     Dosage: ORAL
     Route: 048
     Dates: start: 20040801
  4. ULTRACET [Suspect]
     Indication: OSTEOARTHRITIS

REACTIONS (5)
  - ABDOMINAL PAIN UPPER [None]
  - CONSTIPATION [None]
  - DRUG INEFFECTIVE [None]
  - HAEMATURIA [None]
  - URINARY TRACT INFECTION [None]
